FAERS Safety Report 6020799-0 (Version None)
Quarter: 2008Q4

REPORT INFORMATION
  Report Type: 
  Country: None (occurrence: None)
  Receive Date: 20081229
  Receipt Date: 20081215
  Transmission Date: 20090506
  Serious: Yes (Hospitalization)
  Sender: FDA-Public Use
  Company Number: US-SOLVAY-00208005209

PATIENT
  Age: 17995 Day
  Sex: Female
  Weight: 101.4 kg

DRUGS (15)
  1. GLIMEPIRIDE [Concomitant]
     Indication: TYPE 2 DIABETES MELLITUS
     Dosage: DAILY DOSE: 4 MILLIGRAM(S)
     Route: 048
     Dates: start: 20050101
  2. PANCRELIPASE DELAYED RELEASE CAPSULES [Suspect]
     Indication: PANCREATITIS CHRONIC
     Dosage: DAILY DOSE: 4 CAPSULES (ONE CAPSULE PER MEAL/SNACK)
     Route: 048
     Dates: start: 20080506, end: 20081025
  3. PANCRELIPASE DELAYED RELEASE CAPSULES [Suspect]
     Dosage: DAILY DOSE: 4 DOSAGE FORM
     Route: 048
     Dates: start: 20081027, end: 20081103
  4. AVANDAMET [Concomitant]
     Indication: TYPE 2 DIABETES MELLITUS
     Dosage: DAILY DOSE: 2 DOSAGE FORM
     Route: 048
     Dates: start: 20070101
  5. RUN IN PHASE [Suspect]
     Indication: PANCREATITIS CHRONIC
     Dosage: DAILY DOSE:  UNKNOWN
     Route: 048
     Dates: start: 20080331, end: 20080428
  6. BLINDED MEDICATION [Suspect]
     Indication: PANCREATITIS CHRONIC
     Dosage: DAILY DOSE:  UNKNOWN
     Route: 048
     Dates: start: 20080429, end: 20080505
  7. DICYCLOMINE HCL [Concomitant]
     Indication: IRRITABLE BOWEL SYNDROME
     Dosage: DAILY DOSE: 40 MILLIGRAM(S)
     Route: 048
     Dates: start: 20060101
  8. PROMETHAZINE [Concomitant]
     Indication: PANCREATITIS CHRONIC
     Dosage: DAILY DOSE:  UNKNOWN AS NEEDED
     Route: 048
  9. BENICAR [Concomitant]
     Indication: HYPERTENSION
     Dosage: DAILY DOSE: 20 MILLIGRAM(S)
     Route: 048
     Dates: start: 20040101
  10. FENOFIBRATE [Concomitant]
     Indication: HYPERLIPIDAEMIA
     Dosage: DAILY DOSE: 145 MILLIGRAM(S)
     Route: 048
     Dates: start: 20040101
  11. ROPINIROLE [Concomitant]
     Indication: RESTLESS LEGS SYNDROME
     Dosage: DAILY DOSE: 1 MILLIGRAM(S)
     Route: 048
     Dates: start: 20060101
  12. BONIVA [Concomitant]
     Indication: OSTEOPOROSIS
     Dosage: DAILY DOSE:  150 MG MONTHLY
     Route: 048
     Dates: start: 20070101
  13. XANAX [Concomitant]
     Indication: DRUG USE FOR UNKNOWN INDICATION
     Dosage: DAILY DOSE:  1 MG AS NEEDED
     Route: 048
  14. OMEPRAZOLE [Concomitant]
     Indication: DRUG USE FOR UNKNOWN INDICATION
     Dosage: DAILY DOSE: 20 MILLIGRAM(S)
     Route: 065
  15. PERCOCET [Concomitant]
     Indication: PAIN
     Dosage: DAILY DOSE:  1 DOSAGE FORM EVERY SIX HOURS AS NEEDED
     Route: 048

REACTIONS (3)
  - ANAEMIA [None]
  - PANCREATITIS ACUTE [None]
  - PANCREATITIS CHRONIC [None]
